FAERS Safety Report 8440347 (Version 3)
Quarter: 2013Q4

REPORT INFORMATION
  Report Type: Spontaneous
  Country: US (occurrence: US)
  Receive Date: 20120305
  Receipt Date: 20131121
  Transmission Date: 20140711
  Serious: Yes (Hospitalization)
  Sender: FDA-Public Use
  Company Number: US-BAYER-2012-018904

PATIENT
  Age: 39 Year
  Sex: Female
  Weight: 67.12 kg

DRUGS (8)
  1. YASMIN [Suspect]
     Indication: CONTRACEPTION
     Dosage: UNK
     Dates: start: 200712, end: 200805
  2. CYCLOBENZAPRINE [Concomitant]
     Indication: MUSCLE SPASMS
     Dosage: 10 MG, UNK
     Route: 048
     Dates: start: 200903
  3. INDOMETHACIN [Concomitant]
     Indication: LOCAL SWELLING
     Dosage: 75 MG, UNK
     Route: 048
     Dates: start: 200901
  4. HYDROCODONE/ACETAMINOPHEN [Concomitant]
     Indication: PAIN
     Dosage: 1 TABLET ORALLY EVERY 6 5-500 MG
     Route: 048
  5. PSEUDOEPHEDRINE [Concomitant]
     Dosage: 60 MG Q 4-6 HRS AS NEEDED LIMIT 4/DAY
     Route: 048
  6. FLUTICASONE [Concomitant]
     Dosage: 50 MCG USE 2 SPRAYS IN EACH NOSTRIL DAILY
     Route: 045
  7. LEVONORGESTREL [Concomitant]
     Indication: CONTRACEPTION
     Dosage: UNK
     Dates: start: 200812
  8. LEVORA [Concomitant]
     Dosage: UNK

REACTIONS (3)
  - Cholelithiasis [None]
  - Pain [None]
  - Cholecystitis chronic [None]
